FAERS Safety Report 22013809 (Version 3)
Quarter: 2023Q1

REPORT INFORMATION
  Report Type: Report from Study
  Country: US (occurrence: US)
  Receive Date: 20230221
  Receipt Date: 20230327
  Transmission Date: 20230417
  Serious: No
  Sender: FDA-Public Use
  Company Number: US-002147023-NVSC2023US034144

PATIENT
  Sex: Female
  Weight: 51 kg

DRUGS (3)
  1. KESIMPTA [Suspect]
     Active Substance: OFATUMUMAB
     Indication: Multiple sclerosis
     Dosage: 20 MG, QW (FIRST DOSE) AROUND 3 PM
     Route: 058
     Dates: start: 20230205
  2. KESIMPTA [Suspect]
     Active Substance: OFATUMUMAB
     Dosage: UNK, (SECOND INJECTION)
     Route: 065
  3. NOVOLOG [Concomitant]
     Active Substance: INSULIN ASPART
     Indication: Type 1 diabetes mellitus
     Dosage: 100 UNITS/ML INJECTION PER BLOOD SUGAR PROTOCOL
     Route: 065

REACTIONS (4)
  - Nasopharyngitis [Recovered/Resolved]
  - Chills [Recovered/Resolved]
  - Feeling hot [Recovered/Resolved]
  - Blood glucose increased [Recovered/Resolved]
